FAERS Safety Report 7875218-6 (Version None)
Quarter: 2011Q4

REPORT INFORMATION
  Report Type: 
  Country: None (occurrence: None)
  Receive Date: 20111031
  Receipt Date: 20111025
  Transmission Date: 20120403
  Serious: Yes (Death, Hospitalization)
  Sender: FDA-Public Use
  Company Number: NL-ASTELLAS-2011US007044

PATIENT
  Sex: Male

DRUGS (1)
  1. PROGRAF [Suspect]
     Indication: LUNG TRANSPLANT
     Dosage: 4.5 MG, BID
     Route: 048
     Dates: start: 20110627, end: 20111017

REACTIONS (3)
  - DEATH [None]
  - HOSPITALISATION [None]
  - OFF LABEL USE [None]
